FAERS Safety Report 12403125 (Version 3)
Quarter: 2016Q2

REPORT INFORMATION
  Report Type: Spontaneous
  Country: US (occurrence: US)
  Receive Date: 20160525
  Receipt Date: 20160616
  Transmission Date: 20160815
  Serious: Yes (Other)
  Sender: FDA-Public Use
  Company Number: US-BAYER-2016-100374

PATIENT
  Age: 26 Year
  Sex: Female
  Weight: 70.7 kg

DRUGS (2)
  1. MIRENA [Suspect]
     Active Substance: LEVONORGESTREL
     Indication: MENORRHAGIA
     Dosage: 20 MCG/24HR, CONT
     Route: 015
     Dates: start: 20160301, end: 20160516
  2. MIRENA [Suspect]
     Active Substance: LEVONORGESTREL
     Indication: CONTRACEPTION
     Dosage: 20 MCG/24HR, CONT
     Route: 015
     Dates: start: 2014

REACTIONS (4)
  - Abdominal pain [Not Recovered/Not Resolved]
  - Device dislocation [None]
  - Device difficult to use [None]
  - Genital haemorrhage [None]

NARRATIVE: CASE EVENT DATE: 2014
